FAERS Safety Report 15482528 (Version 1)
Quarter: 2018Q4

REPORT INFORMATION
  Report Type: Report from Study
  Country: CO (occurrence: CO)
  Receive Date: 20181010
  Receipt Date: 20181010
  Transmission Date: 20190205
  Serious: Yes (Other)
  Sender: FDA-Public Use
  Company Number: PHHY2018CO119389

PATIENT
  Sex: Male
  Weight: 67 kg

DRUGS (1)
  1. VOTRIENT [Suspect]
     Active Substance: PAZOPANIB HYDROCHLORIDE
     Indication: RENAL CELL CARCINOMA
     Dosage: 800 MG, QD
     Route: 048
     Dates: start: 20180924

REACTIONS (8)
  - Anxiety [Unknown]
  - Poor quality sleep [Unknown]
  - Tic [Unknown]
  - Weight decreased [Unknown]
  - Depression [Unknown]
  - Feeling cold [Unknown]
  - Asphyxia [Unknown]
  - Tremor [Unknown]
